FAERS Safety Report 22149727 (Version 1)
Quarter: 2023Q1

REPORT INFORMATION
  Report Type: Other
  Country: GB (occurrence: GB)
  Receive Date: 20230329
  Receipt Date: 20230329
  Transmission Date: 20230418
  Serious: Yes (Hospitalization, Other)
  Sender: FDA-Public Use
  Company Number: GB-CELLTRION INC.-2023GB006516

PATIENT

DRUGS (12)
  1. BEVACIZUMAB [Suspect]
     Active Substance: BEVACIZUMAB
     Indication: Product used for unknown indication
  2. ATEZOLIZUMAB [Suspect]
     Active Substance: ATEZOLIZUMAB
     Indication: Product used for unknown indication
  3. APIXABAN [Concomitant]
     Active Substance: APIXABAN
     Dosage: 10 MG, QD
     Route: 048
     Dates: end: 20220904
  4. CYCLIZINE [Concomitant]
     Active Substance: CYCLIZINE
     Dosage: 50 MG, AS NECESSARY
     Route: 048
  5. DOCUSATE [Concomitant]
     Active Substance: DOCUSATE
     Dosage: 2 DF, QD
     Route: 048
  6. MISOPROSTOL [Concomitant]
     Active Substance: MISOPROSTOL
  7. NAPROXEN [Concomitant]
     Active Substance: NAPROXEN
     Dosage: 2 DF, QD
     Route: 048
  8. OMEPRAZOLE [Concomitant]
     Active Substance: OMEPRAZOLE
     Dosage: 40 MG, QD (DOSE FORM: GASTRO-RESISTANT CAPSULE)
     Route: 048
  9. ACETAMINOPHEN [Concomitant]
     Active Substance: ACETAMINOPHEN
     Dosage: 500MG, AS NECESSARY /1 OR 2, FOUR TIMES A DAY
     Route: 048
  10. ALBUTEROL SULFATE [Concomitant]
     Active Substance: ALBUTEROL SULFATE
     Dosage: AS NECESSARY /ONE OR TWO PUFFS 4 TIMES A DAY
  11. PROCHLORPERAZINE MALEATE [Concomitant]
     Active Substance: PROCHLORPERAZINE MALEATE
     Dosage: 3 MG, AS NECESSARY
     Route: 048
  12. FERROUS FUMARATE [Concomitant]
     Active Substance: FERROUS FUMARATE
     Dosage: 420 MG, QD/ REDUCED TO ONCE DAILY
     Route: 048

REACTIONS (2)
  - Myocarditis [Recovered/Resolved]
  - Pericarditis [Unknown]
